FAERS Safety Report 5317480-X (Version None)
Quarter: 2007Q2

REPORT INFORMATION
  Report Type: 
  Country: None (occurrence: None)
  Receive Date: 20070507
  Receipt Date: 20070430
  Transmission Date: 20071010
  Serious: Yes (Death, Other)
  Sender: FDA-Public Use
  Company Number: PHMT2007CA00578

PATIENT
  Age: 54 Year
  Sex: Male

DRUGS (3)
  1. CLOZARIL [Suspect]
     Indication: SCHIZOPHRENIA
     Dosage: 12.5 MG DAILY
     Route: 048
     Dates: start: 20070108, end: 20070114
  2. LORAZEPAM [Concomitant]
     Dosage: 2 MG, QID
     Route: 048
  3. BENZTROPINE MESYLATE [Concomitant]
     Dosage: 1 MG, BID
     Route: 048
     Dates: end: 20070109

REACTIONS (3)
  - DEPRESSED LEVEL OF CONSCIOUSNESS [None]
  - ENCEPHALITIS [None]
  - NEUROLEPTIC MALIGNANT SYNDROME [None]
